FAERS Safety Report 25374246 (Version 1)
Quarter: 2025Q2

REPORT INFORMATION
  Report Type: Spontaneous
  Country: US (occurrence: US)
  Receive Date: 20250529
  Receipt Date: 20250529
  Transmission Date: 20250716
  Serious: No
  Sender: CIPLA
  Company Number: US-CIPLA LTD.-2024US15612

PATIENT

DRUGS (6)
  1. ALBUTEROL [Suspect]
     Active Substance: ALBUTEROL
     Indication: Asthma
  2. ALBUTEROL [Suspect]
     Active Substance: ALBUTEROL
     Indication: Immune reconstitution inflammatory syndrome
     Dates: start: 202412
  3. QVAR [Concomitant]
     Active Substance: BECLOMETHASONE DIPROPIONATE
     Indication: Respiratory tract infection
     Route: 065
     Dates: start: 20241221
  4. PREDNISOLONE [Concomitant]
     Active Substance: PREDNISOLONE
     Indication: Respiratory tract infection
     Dosage: 5 MILLILITER, BID (5 ML TWICE A DAY)
     Route: 065
     Dates: start: 20241219
  5. MUCINEX [Concomitant]
     Active Substance: GUAIFENESIN
     Indication: Respiratory tract infection
     Route: 065
     Dates: start: 20241221
  6. TUSSIN DM MAX [Concomitant]
     Active Substance: DEXTROMETHORPHAN HYDROBROMIDE\GUAIFENESIN
     Indication: Respiratory tract infection
     Dosage: 20 MILLILITER, QD (ONCE A DAY AT BEDTIME)
     Route: 065
     Dates: start: 20241221

REACTIONS (2)
  - Drug dose omission by device [Unknown]
  - Device delivery system issue [Unknown]

NARRATIVE: CASE EVENT DATE: 20241226
